FAERS Safety Report 12186792 (Version 1)
Quarter: 2016Q1

REPORT INFORMATION
  Report Type: Spontaneous
  Country: US (occurrence: US)
  Receive Date: 20160317
  Receipt Date: 20160317
  Transmission Date: 20160526
  Serious: No
  Sender: FDA-Public Use
  Company Number: US-PFIZER INC-2016151354

PATIENT
  Sex: Female

DRUGS (1)
  1. TORISEL [Suspect]
     Active Substance: TEMSIROLIMUS
     Dosage: UNK

REACTIONS (8)
  - Movement disorder [Unknown]
  - Pain [Unknown]
  - Musculoskeletal discomfort [Unknown]
  - Discomfort [Unknown]
  - Joint range of motion decreased [Unknown]
  - Inflammation [Unknown]
  - Rotator cuff syndrome [Unknown]
  - Muscle strain [Unknown]

NARRATIVE: CASE EVENT DATE: 2016
